FAERS Safety Report 9546845 (Version 2)
Quarter: 2014Q1

REPORT INFORMATION
  Report Type: Spontaneous
  Country: US (occurrence: None)
  Receive Date: 20130524
  Receipt Date: 20130724
  Transmission Date: 20141002
  Serious: Yes (Other)
  Sender: FDA-Public Use
  Company Number: PHEH2012US024701

PATIENT
  Age: 67 Year
  Sex: Female

DRUGS (4)
  1. GILENYA (FINGOLIMOD) CAPSULE, 0.5MG [Suspect]
     Indication: MULTIPLE SCLEROSIS
     Route: 048
     Dates: start: 20120829, end: 201211
  2. VITAMIN B12 (CYANOCABALAMIN) [Concomitant]
  3. PRILOSEC (OMEPRAZOLE) [Concomitant]
  4. DETROL LA (TOLTERODINE L-TARTRATE) [Concomitant]

REACTIONS (8)
  - Muscular weakness [None]
  - Hypoaesthesia [None]
  - Chest pain [None]
  - Blood pressure increased [None]
  - Vision blurred [None]
  - Hypertension [None]
  - Dizziness [None]
  - Asthenia [None]
